FAERS Safety Report 23436943 (Version 2)
Quarter: 2024Q1

REPORT INFORMATION
  Report Type: Spontaneous
  Country: BR (occurrence: BR)
  Receive Date: 20240124
  Receipt Date: 20240220
  Transmission Date: 20240410
  Serious: Yes (Other)
  Sender: FDA-Public Use
  Company Number: BR-Accord-402328

PATIENT
  Age: 78 Year
  Sex: Female
  Weight: 85 kg

DRUGS (14)
  1. CISPLATIN [Suspect]
     Active Substance: CISPLATIN
     Indication: Gallbladder cancer
     Dosage: 400 ML, CYCLE 4 DAY 1 (C4D1)
     Route: 042
     Dates: start: 20231109
  2. AMLODIPINE [Concomitant]
     Active Substance: AMLODIPINE BESYLATE
     Dosage: 12/12HS
  3. BIMATOPROST [Concomitant]
     Active Substance: BIMATOPROST
  4. DURVALUMAB [Concomitant]
     Active Substance: DURVALUMAB
     Indication: Chemotherapy
     Route: 042
     Dates: start: 20231109
  5. FOSAPREPITANT [Concomitant]
     Active Substance: FOSAPREPITANT
     Indication: Chemotherapy
     Dates: start: 20231109
  6. GEMCITABINE [Concomitant]
     Active Substance: GEMCITABINE
     Indication: Chemotherapy
     Route: 042
     Dates: start: 20231109
  7. GRANISETRON [Concomitant]
     Active Substance: GRANISETRON
     Indication: Chemotherapy
     Dates: start: 20231109
  8. LEVOTHYROXINE [Concomitant]
     Active Substance: LEVOTHYROXINE\LEVOTHYROXINE SODIUM
  9. LOSARTAN [Concomitant]
     Active Substance: LOSARTAN
     Dosage: 12/12HS
  10. MANNITOL [Concomitant]
     Active Substance: MANNITOL
     Indication: Chemotherapy
     Dosage: 20 %
     Dates: start: 20231109
  11. OMEPRAZOLE [Concomitant]
     Active Substance: OMEPRAZOLE
  12. RIVAROXABAN [Concomitant]
     Active Substance: RIVAROXABAN
  13. SODIUM CHLORIDE [Concomitant]
     Active Substance: SODIUM CHLORIDE
     Indication: Chemotherapy
     Dosage: 0.9%
     Dates: start: 20231109
  14. SPIRONOLACTONE [Concomitant]
     Active Substance: SPIRONOLACTONE

REACTIONS (4)
  - Nausea [Recovered/Resolved]
  - Hypoxia [Recovered/Resolved]
  - Hypertension [Recovered/Resolved]
  - Hyperhidrosis [Recovered/Resolved]

NARRATIVE: CASE EVENT DATE: 20240111
